FAERS Safety Report 7773194-8 (Version None)
Quarter: 2011Q3

REPORT INFORMATION
  Report Type: 
  Country: None (occurrence: None)
  Receive Date: 20110922
  Receipt Date: 20110907
  Transmission Date: 20111222
  Serious: Yes (Hospitalization)
  Sender: FDA-Public Use
  Company Number: CA-SANOFI-AVENTIS-2011SA061131

PATIENT
  Age: 58 Year
  Sex: Female

DRUGS (11)
  1. LANTUS [Concomitant]
  2. RAMIPRIL [Concomitant]
  3. CICLESONIDE [Concomitant]
  4. NOVORAPID [Concomitant]
  5. ORENCIA [Suspect]
     Indication: RHEUMATOID ARTHRITIS
     Route: 042
     Dates: start: 20080904
  6. SYNTHROID [Concomitant]
  7. PLAVIX [Suspect]
  8. CLONAZEPAM [Concomitant]
  9. ADALAT [Concomitant]
  10. SINGULAIR [Concomitant]
  11. ALBUTEROL [Concomitant]

REACTIONS (4)
  - METABOLIC ENCEPHALOPATHY [None]
  - FATIGUE [None]
  - EPISTAXIS [None]
  - BLOOD PRESSURE INCREASED [None]
